FAERS Safety Report 21501287 (Version 1)
Quarter: 2022Q4

REPORT INFORMATION
  Report Type: Spontaneous
  Country: US (occurrence: None)
  Receive Date: 20221024
  Receipt Date: 20221024
  Transmission Date: 20230112
  Serious: Yes (Hospitalization, Disabling)
  Sender: FDA-Public Use
  Company Number: None

PATIENT
  Age: 68 Year
  Sex: Female
  Weight: 89.36 kg

DRUGS (14)
  1. SPRYCEL [Suspect]
     Active Substance: DASATINIB
     Indication: Chronic myeloid leukaemia
     Dosage: 50MG DAILY BY MOUTH
     Route: 048
     Dates: start: 20220302, end: 20221008
  2. TRAMADOL [Concomitant]
     Active Substance: TRAMADOL
  3. VITAMIN D [Concomitant]
     Active Substance: VITAMIN D NOS
  4. GABAPENTIN [Concomitant]
     Active Substance: GABAPENTIN
  5. ISOSORBIDEMONO ER [Concomitant]
  6. LEVOTHYROXINE [Concomitant]
     Active Substance: LEVOTHYROXINE
  7. SIMVASTATIN [Concomitant]
     Active Substance: SIMVASTATIN
  8. ENTRESTO [Concomitant]
     Active Substance: SACUBITRIL\VALSARTAN
  9. ALBUTEROL [Concomitant]
     Active Substance: ALBUTEROL
  10. ALDACTONE [Concomitant]
     Active Substance: SPIRONOLACTONE
  11. CARVEDILOL [Concomitant]
     Active Substance: CARVEDILOL
  12. CEFDINIR [Concomitant]
     Active Substance: CEFDINIR
  13. NITROGLYCERIN [Concomitant]
     Active Substance: NITROGLYCERIN
  14. PROCHLORPERAZINE [Concomitant]
     Active Substance: PROCHLORPERAZINE

REACTIONS (1)
  - Pulmonary oedema [None]

NARRATIVE: CASE EVENT DATE: 20221008
